FAERS Safety Report 8272697-X (Version None)
Quarter: 2012Q2

REPORT INFORMATION
  Report Type: 
  Country: None (occurrence: None)
  Receive Date: 20120411
  Receipt Date: 20120328
  Transmission Date: 20120825
  Serious: Yes (Disabling)
  Sender: FDA-Public Use
  Company Number: US-BAXTER-2012BAX000944

PATIENT
  Sex: Female
  Weight: 61.29 kg

DRUGS (5)
  1. LEXAPRO [Concomitant]
     Route: 048
  2. GAMMAGARD LIQUID [Suspect]
     Route: 042
     Dates: start: 20110601
  3. VALTREX [Concomitant]
     Route: 048
  4. CYTOMEL [Concomitant]
     Route: 048
  5. LEVOTHYROXINE SODIUM [Concomitant]
     Route: 048

REACTIONS (2)
  - UVEITIS [None]
  - RETINAL VASCULITIS [None]
